FAERS Safety Report 5779133-3 (Version None)
Quarter: 2008Q2

REPORT INFORMATION
  Report Type: 
  Country: None (occurrence: None)
  Receive Date: 20080619
  Receipt Date: 20080616
  Transmission Date: 20081010
  Serious: Yes (Life-Threatening, Hospitalization)
  Sender: FDA-Public Use
  Company Number: FR-WYE-G01700308

PATIENT
  Age: 51 Year
  Sex: Female

DRUGS (1)
  1. RHINADVIL [Suspect]
     Indication: OTITIS MEDIA ACUTE
     Route: 048
     Dates: start: 20080102, end: 20080106

REACTIONS (5)
  - ANEURYSM RUPTURED [None]
  - CEREBRAL VENTRICLE DILATATION [None]
  - CEREBROVASCULAR SPASM [None]
  - MENINGEAL DISORDER [None]
  - SUBARACHNOID HAEMORRHAGE [None]
